FAERS Safety Report 6895492-2 (Version None)
Quarter: 2010Q3

REPORT INFORMATION
  Report Type: 
  Country: None (occurrence: None)
  Receive Date: 20100802
  Receipt Date: 20100723
  Transmission Date: 20110219
  Serious: Yes (Life-Threatening, Other)
  Sender: FDA-Public Use
  Company Number: PHHY2010US28636

PATIENT
  Sex: Female

DRUGS (7)
  1. RECLAST [Suspect]
     Indication: OSTEOPOROSIS
     Dosage: 5 MG/100 CC
     Route: 042
     Dates: start: 20091001
  2. PROPRANOLOL [Concomitant]
  3. CLONAZEPAM [Concomitant]
  4. GABAPENTIN [Concomitant]
  5. CALCIUM W/VITAMIN D NOS [Concomitant]
  6. PRILOSEC [Concomitant]
  7. CALCIUM [Concomitant]

REACTIONS (16)
  - ALOPECIA [None]
  - ASTHENIA [None]
  - DENTAL CARIES [None]
  - DEPRESSED LEVEL OF CONSCIOUSNESS [None]
  - FEELING ABNORMAL [None]
  - INFLUENZA LIKE ILLNESS [None]
  - JAW DISORDER [None]
  - MALAISE [None]
  - OESOPHAGEAL OPERATION [None]
  - SEASONAL ALLERGY [None]
  - STRESS [None]
  - TOOTH DISORDER [None]
  - TOOTH EXTRACTION [None]
  - TOOTH FRACTURE [None]
  - TOOTH LOSS [None]
  - VOMITING [None]
